FAERS Safety Report 24829740 (Version 1)
Quarter: 2025Q1

REPORT INFORMATION
  Report Type: Spontaneous
  Country: FR (occurrence: FR)
  Receive Date: 20250110
  Receipt Date: 20250110
  Transmission Date: 20250408
  Serious: Yes (Other)
  Sender: CELLTRION
  Company Number: None

PATIENT

DRUGS (1)
  1. INFLIXIMAB [Suspect]
     Active Substance: INFLIXIMAB
     Indication: Crohn^s disease
     Route: 058
     Dates: start: 20220513, end: 20240505

REACTIONS (17)
  - Major depression [Recovering/Resolving]
  - Fatigue [Recovering/Resolving]
  - Anaemia [Recovering/Resolving]
  - Pyrexia [Recovering/Resolving]
  - Dyspnoea [Recovering/Resolving]
  - Hypertension [Recovering/Resolving]
  - Tachycardia [Recovering/Resolving]
  - Vertigo [Recovering/Resolving]
  - Nausea [Recovering/Resolving]
  - Headache [Recovering/Resolving]
  - Psoriasis [Recovering/Resolving]
  - Eye infection [Recovering/Resolving]
  - Arthralgia [Recovering/Resolving]
  - Memory impairment [Recovering/Resolving]
  - Hot flush [Recovering/Resolving]
  - Eye disorder [Recovering/Resolving]
  - Intentional product use issue [Unknown]

NARRATIVE: CASE EVENT DATE: 20230101
